FAERS Safety Report 6227939-9 (Version None)
Quarter: 2009Q2

REPORT INFORMATION
  Report Type: 
  Country: None (occurrence: None)
  Receive Date: 20090612
  Receipt Date: 20090602
  Transmission Date: 20091009
  Serious: Yes (Hospitalization, Other)
  Sender: FDA-Public Use
  Company Number: US-PFIZER INC-2009204584

PATIENT
  Sex: Female
  Weight: 66 kg

DRUGS (8)
  1. LIPITOR [Suspect]
     Indication: BLOOD CHOLESTEROL INCREASED
     Dosage: 10 MG, 1X/DAY
     Route: 048
     Dates: start: 20040601, end: 20090401
  2. ZOLOFT [Suspect]
     Indication: DEPRESSION
     Dosage: UNK
     Route: 048
     Dates: start: 20020101, end: 20090101
  3. SERTRALINE [Suspect]
     Indication: DEPRESSION
     Dates: end: 20090101
  4. COMBIVENT [Concomitant]
     Dosage: UNK
  5. SYNTHROID [Concomitant]
     Dosage: 137 UG, UNK
  6. VITAMINS [Concomitant]
     Dosage: UNK
  7. ADVAIR HFA [Concomitant]
     Dosage: UNK
  8. MONTELUKAST [Concomitant]

REACTIONS (10)
  - ARTHRALGIA [None]
  - BLOOD CHOLESTEROL INCREASED [None]
  - BRONCHIECTASIS [None]
  - DRUG INEFFECTIVE [None]
  - GAIT DISTURBANCE [None]
  - LUNG NEOPLASM [None]
  - MYALGIA [None]
  - SINUSITIS [None]
  - WHITE BLOOD CELL COUNT INCREASED [None]
  - WRONG TECHNIQUE IN DRUG USAGE PROCESS [None]
